FAERS Safety Report 7907505-7 (Version None)
Quarter: 2011Q4

REPORT INFORMATION
  Report Type: 
  Country: None (occurrence: None)
  Receive Date: 20111110
  Receipt Date: 20111031
  Transmission Date: 20120403
  Serious: Yes (Hospitalization)
  Sender: FDA-Public Use
  Company Number: US-BAYER-2011-041382

PATIENT
  Age: 19 Year
  Sex: Female
  Weight: 49.887 kg

DRUGS (6)
  1. LOVOX [Concomitant]
  2. MOTRIN [Concomitant]
  3. YAZ [Suspect]
     Indication: ACNE
  4. FLUVOXAMINE MALEATE [Concomitant]
  5. YAZ [Suspect]
     Indication: CONTRACEPTION
     Dosage: UNK
     Route: 048
     Dates: start: 20080301, end: 20100801
  6. ULTRAM [Concomitant]

REACTIONS (6)
  - INJURY [None]
  - PULMONARY EMBOLISM [None]
  - DEPRESSION [None]
  - TRICHOTILLOMANIA [None]
  - ANXIETY [None]
  - CHEST PAIN [None]
